FAERS Safety Report 9869570 (Version 1)
Quarter: 2014Q1

REPORT INFORMATION
  Report Type: Spontaneous
  Country: US (occurrence: US)
  Receive Date: 20140205
  Receipt Date: 20140205
  Transmission Date: 20141002
  Serious: No
  Sender: FDA-Public Use
  Company Number: US-PFIZER INC-2014030133

PATIENT
  Age: 67 Year
  Sex: Male
  Weight: 104 kg

DRUGS (3)
  1. PANTOPRAZOLE [Suspect]
     Indication: POSTOPERATIVE CARE
     Dosage: 40 MG, 1X/DAY
     Route: 048
     Dates: start: 201204
  2. COZAAR [Concomitant]
     Indication: HYPERTENSION
     Dosage: UNK
  3. ATENOLOL [Concomitant]
     Indication: HYPERTENSION
     Dosage: UNK

REACTIONS (1)
  - Abdominal pain upper [Not Recovered/Not Resolved]
